FAERS Safety Report 8090816-5 (Version None)
Quarter: 2012Q1

REPORT INFORMATION
  Report Type: 
  Country: None (occurrence: None)
  Receive Date: 20120125
  Receipt Date: 20120113
  Transmission Date: 20120608
  Serious: Yes (Hospitalization, Other)
  Sender: FDA-Public Use
  Company Number: 2010001648

PATIENT
  Age: 75 Year
  Sex: Female
  Weight: 48 kg

DRUGS (8)
  1. LIVALO [Concomitant]
  2. TARCEVA [Suspect]
     Indication: LUNG ADENOCARCINOMA
     Dosage: 100 MG, UID/QD, ORAL
     Route: 048
     Dates: start: 20100311, end: 20100412
  3. DIOVAN [Concomitant]
  4. PYDOXAL (PYRIDOXAL PHOSPHATE) TABLET [Concomitant]
  5. MAGMITT (MAGNESIUM OXIDE) TABLET [Concomitant]
  6. HIBON (RIBOFLAVIN TETRABUTYRATE) TABLET [Concomitant]
  7. COVERSYL (PERINDOPRIL) TABLET [Concomitant]
  8. URSO 250 [Concomitant]

REACTIONS (22)
  - FAECAL INCONTINENCE [None]
  - EYE DISCHARGE [None]
  - DEPRESSED LEVEL OF CONSCIOUSNESS [None]
  - CONFUSIONAL STATE [None]
  - BRADYKINESIA [None]
  - AGGRESSION [None]
  - TREMOR [None]
  - ENCEPHALOPATHY [None]
  - CONVULSION [None]
  - FRUSTRATION [None]
  - FALL [None]
  - MASKED FACIES [None]
  - LOSS OF CONSCIOUSNESS [None]
  - LETHARGY [None]
  - INCORRECT DOSE ADMINISTERED [None]
  - IRRITABILITY [None]
  - CONTUSION [None]
  - ANGER [None]
  - GAIT DISTURBANCE [None]
  - URINARY INCONTINENCE [None]
  - PERSONALITY CHANGE [None]
  - DISTURBANCE IN ATTENTION [None]
